FAERS Safety Report 19784217 (Version 1)
Quarter: 2021Q3

REPORT INFORMATION
  Report Type: Spontaneous
  Country: US (occurrence: US)
  Receive Date: 20210831
  Receipt Date: 20210831
  Transmission Date: 20211014
  Serious: No
  Sender: FDA-Public Use
  Company Number: None

PATIENT
  Sex: Female

DRUGS (2)
  1. XEOMIN [Suspect]
     Active Substance: INCOBOTULINUMTOXINA
     Indication: MIGRAINE
     Dosage: ?          OTHER STRENGTH:100U/VL;OTHER FREQUENCY:EVERY 12 WEEKS;?
     Route: 030
     Dates: start: 20201231, end: 202103
  2. XEOMIN [Suspect]
     Active Substance: INCOBOTULINUMTOXINA
     Indication: TORTICOLLIS
     Dosage: ?          OTHER STRENGTH:100U/VL;OTHER FREQUENCY:EVERY 12 WEEKS;?
     Route: 030
     Dates: start: 20201231, end: 202103

REACTIONS (4)
  - Pharyngeal swelling [None]
  - Dysphagia [None]
  - Orthosis user [None]
  - Swelling [None]
